FAERS Safety Report 9449569 (Version 1)
Quarter: 2013Q3

REPORT INFORMATION
  Report Type: Spontaneous
  Country: KR (occurrence: KR)
  Receive Date: 20130809
  Receipt Date: 20130809
  Transmission Date: 20140515
  Serious: Yes (Other)
  Sender: FDA-Public Use
  Company Number: KR-JNJFOC-20130803918

PATIENT
  Age: 9 Year
  Sex: Male

DRUGS (2)
  1. CETIRIZINE HYDROCHLORIDE [Suspect]
     Route: 048
  2. PREDNISOLONE [Concomitant]
     Indication: EOSINOPHILIC CELLULITIS
     Route: 048

REACTIONS (2)
  - Dermatitis bullous [Recovered/Resolved]
  - Off label use [Unknown]
